FAERS Safety Report 8960053 (Version 1)
Quarter: 2012Q4

REPORT INFORMATION
  Report Type: 
  Country: US (occurrence: US)
  Receive Date: 20121211
  Receipt Date: 20121211
  Transmission Date: 20130627
  Serious: Yes (Hospitalization)
  Sender: FDA-Public Use
  Company Number: US-GLAXOSMITHKLINE-A0728605A

PATIENT
  Age: 39 Year
  Sex: Male
  Weight: 81.8 kg

DRUGS (6)
  1. AVANDIA [Suspect]
     Indication: PRODUCT USED FOR UNKNOWN INDICATION
     Dosage: 4MG Twice per day
     Route: 048
     Dates: start: 2001, end: 200610
  2. AVANDAMET [Suspect]
     Indication: DIABETES MELLITUS
     Route: 048
  3. GLUCOPHAGE [Concomitant]
  4. METFORMIN [Concomitant]
  5. DIABETA [Concomitant]
  6. LANTUS [Concomitant]

REACTIONS (2)
  - Myocardial ischaemia [Unknown]
  - Angina pectoris [Unknown]
